FAERS Safety Report 5782027-0 (Version None)
Quarter: 2008Q2

REPORT INFORMATION
  Report Type: 
  Country: None (occurrence: None)
  Receive Date: 20080623
  Receipt Date: 20080616
  Transmission Date: 20081010
  Serious: Yes (Hospitalization)
  Sender: FDA-Public Use
  Company Number: US-MERCK-0806USA03080

PATIENT
  Sex: Female

DRUGS (4)
  1. ZETIA [Suspect]
     Indication: BLOOD CHOLESTEROL
     Route: 048
     Dates: start: 20050101, end: 20050101
  2. ZETIA [Suspect]
     Route: 048
     Dates: end: 20050101
  3. ANALGESIC OR ANESTHETIC (UNSPECIFIED) [Concomitant]
     Route: 065
  4. CLONAZEPAM [Concomitant]
     Route: 065

REACTIONS (2)
  - HAEMATEMESIS [None]
  - THERAPEUTIC RESPONSE DECREASED [None]
